FAERS Safety Report 20023379 (Version 2)
Quarter: 2021Q4

REPORT INFORMATION
  Report Type: Spontaneous
  Country: US (occurrence: US)
  Receive Date: 20211102
  Receipt Date: 20211102
  Transmission Date: 20220303
  Serious: Yes (Death, Hospitalization, Other)
  Sender: FDA-Public Use
  Company Number: US-CELGENE-USA-20211100201

PATIENT
  Age: 83 Year
  Sex: Male

DRUGS (7)
  1. THALIDOMIDE [Suspect]
     Active Substance: THALIDOMIDE
     Indication: Myelofibrosis
     Dosage: 50 MILLIGRAM
     Route: 048
     Dates: start: 20200601, end: 20210927
  2. THALIDOMIDE [Suspect]
     Active Substance: THALIDOMIDE
     Indication: Myeloid metaplasia
  3. THALIDOMIDE [Suspect]
     Active Substance: THALIDOMIDE
     Indication: Off label use
  4. METOLAZONE [Concomitant]
     Active Substance: METOLAZONE
     Indication: Product used for unknown indication
     Route: 065
  5. CITALOPRAM [Concomitant]
     Active Substance: CITALOPRAM HYDROBROMIDE
     Indication: Product used for unknown indication
     Route: 065
  6. TORSEMIDE [Concomitant]
     Active Substance: TORSEMIDE
     Indication: Product used for unknown indication
     Route: 065
  7. PREDNISONE [Concomitant]
     Active Substance: PREDNISONE
     Indication: Product used for unknown indication
     Route: 065

REACTIONS (3)
  - Mental status changes [Fatal]
  - Thrombocytopenia [Recovering/Resolving]
  - Anaemia [Unknown]

NARRATIVE: CASE EVENT DATE: 20200601
